FAERS Safety Report 23835812 (Version 1)
Quarter: 2024Q2

REPORT INFORMATION
  Report Type: Spontaneous
  Country: US (occurrence: None)
  Receive Date: 20240507
  Receipt Date: 20240507
  Transmission Date: 20240716
  Serious: No
  Sender: FDA-Public Use
  Company Number: None

PATIENT
  Sex: Female

DRUGS (3)
  1. TERIPARATIDE [Suspect]
     Active Substance: TERIPARATIDE
     Indication: Fractured sacrum
     Dosage: FREQUENCY : DAILY;?
     Route: 058
     Dates: start: 202312
  2. FORTEO [Concomitant]
     Active Substance: TERIPARATIDE
  3. TERIPARATIDE PEN (PRASCO) [Concomitant]

REACTIONS (1)
  - Device computer issue [None]
